FAERS Safety Report 17105199 (Version 1)
Quarter: 2019Q4

REPORT INFORMATION
  Report Type: Spontaneous
  Country: US (occurrence: US)
  Receive Date: 20191203
  Receipt Date: 20191203
  Transmission Date: 20200122
  Serious: No
  Sender: FDA-Public Use
  Company Number: US-TEVA-2019-US-1147510

PATIENT
  Sex: Male

DRUGS (3)
  1. LAMICTAL [Concomitant]
     Active Substance: LAMOTRIGINE
  2. LITHIUM. [Concomitant]
     Active Substance: LITHIUM
     Dosage: DECREASED BY 1 PILL TO 1200 MG
     Route: 065
  3. CLOZAPINE TEVA [Suspect]
     Active Substance: CLOZAPINE
     Dosage: SINCE AROUND 8 OR 9 YEARS AGO
     Route: 065

REACTIONS (7)
  - Enuresis [Unknown]
  - Psychotic disorder [Unknown]
  - Drug ineffective [Unknown]
  - Urinary incontinence [Unknown]
  - Disturbance in attention [Unknown]
  - Somnolence [Unknown]
  - Memory impairment [Unknown]
